FAERS Safety Report 5555468-4 (Version None)
Quarter: 2007Q4

REPORT INFORMATION
  Report Type: 
  Country: None (occurrence: None)
  Receive Date: 20071213
  Receipt Date: 20070820
  Transmission Date: 20080405
  Serious: No
  Sender: FDA-Public Use
  Company Number: US-AMGEN-KDL239626

PATIENT
  Sex: Female

DRUGS (2)
  1. ENBREL [Suspect]
     Indication: RHEUMATOID ARTHRITIS
     Route: 058
     Dates: start: 20070707
  2. METHOTREXATE [Concomitant]
     Dates: start: 20060301

REACTIONS (4)
  - CYSTITIS [None]
  - DRUG INEFFECTIVE [None]
  - INJECTION SITE ERYTHEMA [None]
  - INJECTION SITE EXTRAVASATION [None]
